FAERS Safety Report 9297929 (Version 1)
Quarter: 2013Q2

REPORT INFORMATION
  Report Type: Spontaneous
  Country: US (occurrence: US)
  Receive Date: 20130520
  Receipt Date: 20130520
  Transmission Date: 20140414
  Serious: Yes (Other)
  Sender: FDA-Public Use
  Company Number: US-PFIZER INC-2013153768

PATIENT
  Sex: Male

DRUGS (2)
  1. CHANTIX [Suspect]
     Indication: SMOKING CESSATION THERAPY
     Dosage: 0.5 MG, 1X/DAY
     Route: 048
  2. CHANTIX [Suspect]
     Dosage: 1 MG, 2X/DAY
     Route: 048

REACTIONS (8)
  - Thinking abnormal [Unknown]
  - Disturbance in attention [Unknown]
  - Dissociation [Unknown]
  - Euphoric mood [Unknown]
  - Depressed mood [Unknown]
  - Feeling abnormal [Unknown]
  - Lethargy [Unknown]
  - Headache [Unknown]
